FAERS Safety Report 7347396-9 (Version None)
Quarter: 2011Q1

REPORT INFORMATION
  Report Type: 
  Country: None (occurrence: None)
  Receive Date: 20110311
  Receipt Date: 20110304
  Transmission Date: 20110831
  Serious: Yes (Hospitalization)
  Sender: FDA-Public Use
  Company Number: CA-ROCHE-764121

PATIENT
  Age: 78 Year
  Sex: Female

DRUGS (2)
  1. XELODA [Suspect]
     Indication: COLORECTAL CANCER
     Dosage: STOP DATE REPORTED AS JANUARY 2011.
     Route: 048
     Dates: start: 20110117, end: 20110120
  2. XELODA [Suspect]
     Route: 048
     Dates: start: 20110228

REACTIONS (3)
  - INTESTINAL OBSTRUCTION [None]
  - DIARRHOEA [None]
  - DECREASED APPETITE [None]
